FAERS Safety Report 4906277-8 (Version None)
Quarter: 2006Q1

REPORT INFORMATION
  Report Type: 
  Country: None (occurrence: None)
  Receive Date: 20060209
  Receipt Date: 20060203
  Transmission Date: 20060701
  Serious: Yes (Life-Threatening)
  Sender: FDA-Public Use
  Company Number: FR-AVENTIS-200611064GDDC

PATIENT
  Age: 29 Year
  Sex: Male

DRUGS (4)
  1. MINIRIN [Suspect]
     Indication: PLATELET DISORDER
     Route: 042
     Dates: start: 20051014, end: 20051014
  2. HYDROCORTANCYL [Suspect]
     Indication: SCIATICA
     Route: 037
     Dates: start: 20051014, end: 20051014
  3. IOPAMIRON [Suspect]
     Route: 037
     Dates: start: 20051014, end: 20051014
  4. XYLOCAINE [Suspect]
     Indication: LOCAL ANAESTHESIA
     Route: 058
     Dates: start: 20051014, end: 20051014

REACTIONS (10)
  - ATRIOVENTRICULAR BLOCK FIRST DEGREE [None]
  - ATRIOVENTRICULAR BLOCK SECOND DEGREE [None]
  - BLOOD PRESSURE SYSTOLIC INCREASED [None]
  - BRUGADA SYNDROME [None]
  - CARDIAC ARREST [None]
  - HEART RATE INCREASED [None]
  - LOSS OF CONSCIOUSNESS [None]
  - MYOCLONUS [None]
  - PARAESTHESIA [None]
  - PROCEDURAL COMPLICATION [None]
